FAERS Safety Report 9618733 (Version 2)
Quarter: 2013Q4

REPORT INFORMATION
  Report Type: Spontaneous
  Country: US (occurrence: US)
  Receive Date: 20131014
  Receipt Date: 20131014
  Transmission Date: 20140711
  Serious: Yes (Other)
  Sender: FDA-Public Use
  Company Number: US-ACCORD-018325

PATIENT
  Age: 46 Year
  Sex: Female
  Weight: 47.27 kg

DRUGS (4)
  1. SENNA [Concomitant]
     Dosage: 1 TABLET DAILY
     Route: 048
  2. DOCUSATE SODIUM [Concomitant]
     Dosage: 1 CAPSULE DAILY
     Route: 048
  3. QUETIAPINE FUMARATE [Suspect]
     Indication: BIPOLAR DISORDER
     Dosage: DAILY DOSE: 1200 MG, SWITCHED FROM THE 300 MG X 4 TO THE ACCORD^S 400 MG X 3 , A NIGHT
     Route: 048
     Dates: start: 20130609, end: 20130627
  4. CLONAZEPAM [Concomitant]
     Indication: ANXIETY
     Dosage: DAILY DOSE: 2 MG
     Route: 048

REACTIONS (2)
  - Anger [Recovering/Resolving]
  - Drug ineffective [Recovering/Resolving]
